FAERS Safety Report 15231913 (Version 1)
Quarter: 2018Q3

REPORT INFORMATION
  Report Type: Spontaneous
  Country: PL (occurrence: PL)
  Receive Date: 20180802
  Receipt Date: 20180802
  Transmission Date: 20181010
  Serious: Yes (Death, Life-Threatening, Hospitalization)
  Sender: FDA-Public Use
  Company Number: PL-PFIZER INC-2018309476

PATIENT
  Age: 82 Year
  Sex: Male

DRUGS (4)
  1. HYDROXYZINE [Suspect]
     Active Substance: HYDROXYZINE HYDROCHLORIDE
     Dosage: UNK
     Route: 065
  2. CORDARONE [Suspect]
     Active Substance: AMIODARONE HYDROCHLORIDE
     Dosage: UNK
     Route: 065
  3. THYROZOL [Suspect]
     Active Substance: METHIMAZOLE
     Dosage: UNK
     Route: 065
  4. ATORIS [Suspect]
     Active Substance: ATORVASTATIN CALCIUM
     Dosage: UNK
     Route: 065

REACTIONS (5)
  - Atrial fibrillation [Fatal]
  - Cardiac death [Fatal]
  - Cardiac fibrillation [Fatal]
  - Extrasystoles [Fatal]
  - Arrhythmia [Fatal]

NARRATIVE: CASE EVENT DATE: 20180329
